FAERS Safety Report 13202677 (Version 1)
Quarter: 2017Q1

REPORT INFORMATION
  Report Type: Spontaneous
  Country: US (occurrence: US)
  Receive Date: 20170209
  Receipt Date: 20170209
  Transmission Date: 20170428
  Serious: No
  Sender: FDA-Public Use
  Company Number: US-ASTRAZENECA-2017SE11721

PATIENT
  Sex: Female

DRUGS (1)
  1. BRILINTA [Suspect]
     Active Substance: TICAGRELOR
     Route: 048
     Dates: start: 20170118

REACTIONS (6)
  - Feeling abnormal [Unknown]
  - Contusion [Unknown]
  - Headache [Unknown]
  - Mental impairment [Unknown]
  - Memory impairment [Unknown]
  - Dizziness [Unknown]
